FAERS Safety Report 20137591 (Version 3)
Quarter: 2021Q4

REPORT INFORMATION
  Report Type: Spontaneous
  Country: US (occurrence: US)
  Receive Date: 20211201
  Receipt Date: 20211216
  Transmission Date: 20220303
  Serious: Yes (Hospitalization, Other)
  Sender: FDA-Public Use
  Company Number: US-drreddys-LIT/USA/21/0144328

PATIENT
  Age: 49 Year
  Sex: Female

DRUGS (1)
  1. DOXORUBICIN HYDROCHLORIDE [Suspect]
     Active Substance: DOXORUBICIN HYDROCHLORIDE
     Indication: Breast cancer recurrent
     Dosage: RECEIVED ONE DOSE OF DOXORUBICIN 2 WEEKS PRIOR

REACTIONS (5)
  - Drug-induced liver injury [Recovering/Resolving]
  - Hepatotoxicity [Recovering/Resolving]
  - Encephalopathy [Recovering/Resolving]
  - Granulomatous liver disease [Recovering/Resolving]
  - Acute hepatic failure [Recovering/Resolving]
